FAERS Safety Report 9511590 (Version 2)
Quarter: 2013Q4

REPORT INFORMATION
  Report Type: Spontaneous
  Country: CH (occurrence: None)
  Receive Date: 20130906
  Receipt Date: 20131001
  Transmission Date: 20140711
  Serious: Yes (Other)
  Sender: FDA-Public Use
  Company Number: 20130459

PATIENT
  Age: 75 Year
  Sex: Male

DRUGS (4)
  1. VENOFER [Suspect]
     Indication: PRODUCT USED FOR UNKNOWN INDICATION
     Dosage: 100MG/5ML, 100 MG INTRAVENOUS DRIP
     Route: 041
     Dates: start: 20130403, end: 20130403
  2. LOVENOX [Suspect]
     Indication: PRODUCT USED FOR UNKNOWN INDICATION
  3. HEPARINE CHOAY [Concomitant]
  4. ORGARAN (DANAPAROID SODIUM) [Concomitant]

REACTIONS (2)
  - Urticaria [None]
  - Hypotension [None]
